FAERS Safety Report 13155664 (Version 1)
Quarter: 2017Q1

REPORT INFORMATION
  Report Type: Spontaneous
  Country: US (occurrence: US)
  Receive Date: 20170126
  Receipt Date: 20170126
  Transmission Date: 20170428
  Serious: No
  Sender: FDA-Public Use
  Company Number: US-ROCHE-GNE309798

PATIENT
  Age: 75 Year
  Sex: Male

DRUGS (2)
  1. HEPARIN [Concomitant]
     Active Substance: HEPARIN SODIUM
     Indication: PRODUCT USED FOR UNKNOWN INDICATION
     Dosage: 2000 IU, 3/WEEK
     Route: 065
     Dates: start: 20101115
  2. CATHFLO ACTIVASE [Suspect]
     Active Substance: ALTEPLASE
     Indication: ARTERIOVENOUS GRAFT THROMBOSIS
     Dosage: 2 MG, SINGLE
     Route: 042
     Dates: start: 20101115

REACTIONS (2)
  - Hypersensitivity [Recovered/Resolved with Sequelae]
  - Infection [None]

NARRATIVE: CASE EVENT DATE: 20101115
